FAERS Safety Report 13485048 (Version 2)
Quarter: 2017Q2

REPORT INFORMATION
  Report Type: Spontaneous
  Country: JP (occurrence: JP)
  Receive Date: 20170426
  Receipt Date: 20170503
  Transmission Date: 20170830
  Serious: No
  Sender: FDA-Public Use
  Company Number: PHJP2017JP013887

PATIENT
  Age: 67 Year
  Sex: Female

DRUGS (1)
  1. AZORGA COMBINATION OPHTHALMIC SUSPENSION [Suspect]
     Active Substance: BRINZOLAMIDE\TIMOLOL MALEATE
     Indication: ANGLE CLOSURE GLAUCOMA
     Dosage: UNK
     Route: 047
     Dates: start: 20140213, end: 20170420

REACTIONS (1)
  - Vertigo positional [Recovered/Resolved]

NARRATIVE: CASE EVENT DATE: 20170320
